FAERS Safety Report 12435073 (Version 1)
Quarter: 2016Q2

REPORT INFORMATION
  Report Type: Spontaneous
  Country: US (occurrence: US)
  Receive Date: 20160603
  Receipt Date: 20160603
  Transmission Date: 20160815
  Serious: No
  Sender: FDA-Public Use
  Company Number: US-ROCHE-1599050

PATIENT
  Sex: Male

DRUGS (1)
  1. XELODA [Suspect]
     Active Substance: CAPECITABINE
     Indication: OESOPHAGEAL CARCINOMA
     Dosage: PATIENT IS TAKING 500MG TABLETS, DOSAGE UNKNOWN
     Route: 048

REACTIONS (3)
  - Wrong technique in product usage process [Unknown]
  - Pain [Unknown]
  - Dysphagia [Unknown]
